FAERS Safety Report 7527771-X (Version None)
Quarter: 2011Q2

REPORT INFORMATION
  Report Type: 
  Country: None (occurrence: None)
  Receive Date: 20110527
  Receipt Date: 20110513
  Transmission Date: 20111010
  Serious: Yes (Death, Hospitalization)
  Sender: FDA-Public Use
  Company Number: 2011002054

PATIENT
  Age: 67 Year
  Sex: Male

DRUGS (26)
  1. LANTUS [Concomitant]
  2. AMOBAN (ZOPICLONE) [Concomitant]
  3. ALPRAZOLAM [Concomitant]
  4. TARCEVA [Suspect]
     Indication: NON-SMALL CELL LUNG CANCER
     Dosage: 150 MG, UID/QD, ORAL
     Route: 048
     Dates: start: 20100619, end: 20110403
  5. GLYSENNID [Concomitant]
  6. LANSOPRAZOLE [Concomitant]
  7. OXYCONTIN [Concomitant]
  8. ALLOID (SODIUM ALGINATE) [Concomitant]
  9. ASPIRIN [Concomitant]
  10. LOCOID [Concomitant]
  11. BISOLVON (BROMHEXINE HYDROCHLORIDE) [Concomitant]
  12. MONILAC (LACTULOSE) [Concomitant]
  13. MAGLAX (MAGNESIUM OXIDE) [Concomitant]
  14. MORPHINE [Concomitant]
  15. MYSER (DIFLUPREDNATE) [Concomitant]
  16. NOVAMIN (PROCHLORPERAZINE) [Concomitant]
  17. HIRUDOID (HEPARINOID) [Concomitant]
  18. LYRICA [Concomitant]
  19. NORVASC [Concomitant]
  20. PRAVASTATIN SODIUM [Concomitant]
  21. TICLOPIDINE HCL [Concomitant]
  22. HUMALOG [Concomitant]
  23. RINDERON (BETAMETHASONE) [Concomitant]
  24. LAXOBERON (SODIUM PICOSULFATE) [Concomitant]
  25. GASMOTIN (MOSAPRIDE CITRATE) [Concomitant]
  26. LOXOPROFEN (LOXOPROFEN) [Concomitant]

REACTIONS (6)
  - PLEURAL EFFUSION [None]
  - PNEUMONIA ASPIRATION [None]
  - PNEUMONITIS [None]
  - RESPIRATORY FAILURE [None]
  - RASH [None]
  - LUNG INFECTION [None]
